FAERS Safety Report 5431314-4 (Version None)
Quarter: 2007Q3

REPORT INFORMATION
  Report Type: 
  Country: None (occurrence: None)
  Receive Date: 20070830
  Receipt Date: 20070412
  Transmission Date: 20080115
  Serious: No
  Sender: FDA-Public Use
  Company Number: A0647492A

PATIENT
  Sex: Male

DRUGS (2)
  1. WELLBUTRIN [Suspect]
  2. ALPRAZOLAM [Concomitant]

REACTIONS (1)
  - TENSION HEADACHE [None]
